FAERS Safety Report 23177205 (Version 1)
Quarter: 2023Q4

REPORT INFORMATION
  Report Type: Spontaneous
  Country: US (occurrence: None)
  Receive Date: 20231111
  Receipt Date: 20231111
  Transmission Date: 20240109
  Serious: No
  Sender: FDA-Public Use
  Company Number: None

PATIENT
  Age: 62 Year
  Sex: Male
  Weight: 91.8 kg

DRUGS (16)
  1. OZEMPIC [Suspect]
     Active Substance: SEMAGLUTIDE
     Indication: Type 2 diabetes mellitus
     Dosage: OTHER QUANTITY : 1 INJECTION(S);?FREQUENCY : WEEKLY;?
     Route: 058
     Dates: start: 20230714, end: 20231003
  2. ASPIRIN [Concomitant]
     Active Substance: ASPIRIN
  3. METOPROLOL TARTRATE [Concomitant]
     Active Substance: METOPROLOL TARTRATE
  4. TRINTELLIX [Concomitant]
     Active Substance: VORTIOXETINE HYDROBROMIDE
  5. ZOFRAN [Concomitant]
     Active Substance: ONDANSETRON HYDROCHLORIDE
  6. METFORMIN [Concomitant]
     Active Substance: METFORMIN HYDROCHLORIDE
  7. TADALAFIL [Concomitant]
     Active Substance: TADALAFIL
  8. HYDROCORTISONE [Concomitant]
     Active Substance: HYDROCORTISONE
  9. TRAZODONE [Concomitant]
     Active Substance: TRAZODONE HYDROCHLORIDE
  10. DEXTROSTAT [Concomitant]
     Active Substance: DEXTROAMPHETAMINE SULFATE
  11. OLANZAPINE [Concomitant]
     Active Substance: OLANZAPINE
  12. METHOCARBAMOL [Concomitant]
     Active Substance: METHOCARBAMOL
  13. Hydration infusions [Concomitant]
  14. naCl+K [Concomitant]
  15. VITAMINS [Concomitant]
     Active Substance: VITAMINS
  16. Tylonol [Concomitant]

REACTIONS (7)
  - Decreased appetite [None]
  - Depression [None]
  - Thinking abnormal [None]
  - Nausea [None]
  - Vomiting [None]
  - Decreased interest [None]
  - Hypophagia [None]

NARRATIVE: CASE EVENT DATE: 20231002
